FAERS Safety Report 10438484 (Version 1)
Quarter: 2014Q3

REPORT INFORMATION
  Report Type: Spontaneous
  Country: US (occurrence: US)
  Receive Date: 20140908
  Receipt Date: 20140908
  Transmission Date: 20150326
  Serious: No
  Sender: FDA-Public Use
  Company Number: US-BRISTOL-MYERS SQUIBB COMPANY-20566634

PATIENT
  Age: 46 Year
  Sex: Male

DRUGS (14)
  1. PEPCID [Concomitant]
     Active Substance: FAMOTIDINE
  2. VITAMIN B12 [Concomitant]
     Active Substance: CYANOCOBALAMIN
  3. VITAMIN B1 [Concomitant]
     Active Substance: THIAMINE HYDROCHLORIDE
  4. ABILIFY [Suspect]
     Active Substance: ARIPIPRAZOLE
     Indication: SCHIZOAFFECTIVE DISORDER
     Dosage: 25MG NOV13
     Dates: start: 2008
  5. FINASTERIDE. [Concomitant]
     Active Substance: FINASTERIDE
  6. PROVIGIL [Concomitant]
     Active Substance: MODAFINIL
  7. LEXAPRO [Concomitant]
     Active Substance: ESCITALOPRAM OXALATE
  8. COGENTIN [Concomitant]
     Active Substance: BENZTROPINE MESYLATE
  9. MELATONIN [Concomitant]
     Active Substance: MELATONIN
  10. SYNTHROID [Concomitant]
     Active Substance: LEVOTHYROXINE SODIUM
  11. CLONAPIN [Concomitant]
  12. ATENOLOL. [Concomitant]
     Active Substance: ATENOLOL
  13. FLOMAX [Concomitant]
     Active Substance: TAMSULOSIN HYDROCHLORIDE
  14. FINASTERIDE. [Concomitant]
     Active Substance: FINASTERIDE

REACTIONS (3)
  - Hypoaesthesia oral [Unknown]
  - Vomiting [Unknown]
  - Cystitis [Unknown]

NARRATIVE: CASE EVENT DATE: 201310
